FAERS Safety Report 4409524-4 (Version None)
Quarter: 2004Q3

REPORT INFORMATION
  Report Type: 
  Country: None (occurrence: None)
  Receive Date: 20040723
  Receipt Date: 20040714
  Transmission Date: 20050211
  Serious: Yes (Other)
  Sender: FDA-Public Use
  Company Number: JP-JNJFOC-20040704586

PATIENT
  Age: 47 Year
  Sex: Male

DRUGS (11)
  1. RISPERDAL [Suspect]
     Indication: SCHIZOPHRENIA
     Dosage: 3 MG, 1 IN 1 DAY, ORAL    SEE IMAGE
     Route: 048
     Dates: start: 20031227, end: 20040105
  2. RISPERDAL [Suspect]
     Indication: SCHIZOPHRENIA
     Dosage: 3 MG, 1 IN 1 DAY, ORAL    SEE IMAGE
     Route: 048
     Dates: start: 20040106, end: 20040119
  3. RISPERDAL [Suspect]
     Indication: SCHIZOPHRENIA
     Dosage: 3 MG, 1 IN 1 DAY, ORAL    SEE IMAGE
     Route: 048
     Dates: start: 20040120, end: 20040122
  4. RISPERDAL [Suspect]
     Indication: SCHIZOPHRENIA
     Dosage: 3 MG, 1 IN 1 DAY, ORAL    SEE IMAGE
     Route: 048
     Dates: start: 20040123, end: 20040225
  5. RISPERDAL [Suspect]
     Indication: SCHIZOPHRENIA
     Dosage: 3 MG, 1 IN 1 DAY, ORAL    SEE IMAGE
     Route: 048
     Dates: start: 20040226, end: 20040308
  6. RISPERDAL [Suspect]
     Indication: SCHIZOPHRENIA
     Dosage: 3 MG, 1 IN 1 DAY, ORAL    SEE IMAGE
     Route: 048
     Dates: start: 20040309, end: 20040422
  7. RISPERDAL [Suspect]
     Indication: SCHIZOPHRENIA
     Dosage: 3 MG, 1 IN 1 DAY, ORAL    SEE IMAGE
     Route: 048
     Dates: start: 20040423
  8. BIPERIDEN HYDROCHLORIDE [Concomitant]
  9. DIAZEPAM [Concomitant]
  10. PROPRANOLOL HYDROCHLORIDE [Concomitant]
  11. TANDOSPIRONE CITRATE [Concomitant]

REACTIONS (6)
  - AKATHISIA [None]
  - ANAEMIA [None]
  - BLOOD AMYLASE INCREASED [None]
  - BLOOD TRIGLYCERIDES INCREASED [None]
  - DRUG INEFFECTIVE [None]
  - HYPERLIPIDAEMIA [None]
